FAERS Safety Report 23311945 (Version 3)
Quarter: 2024Q1

REPORT INFORMATION
  Report Type: Spontaneous
  Country: US (occurrence: US)
  Receive Date: 20231219
  Receipt Date: 20240125
  Transmission Date: 20240410
  Serious: Yes (Hospitalization, Other)
  Sender: FDA-Public Use
  Company Number: US-SA-SAC20231213000676

PATIENT
  Age: 67 Year
  Sex: Male

DRUGS (9)
  1. ALPROLIX [Suspect]
     Active Substance: EFTRENONACOG ALFA
     Indication: Factor IX deficiency
     Dosage: 10000 U, QW (ON WEDNESDAYS) (START DATE SINCE OCT-2022 OR NOV2022)
     Route: 042
     Dates: start: 202211, end: 202312
  2. ALPROLIX [Suspect]
     Active Substance: EFTRENONACOG ALFA
     Indication: Factor IX deficiency
     Dosage: 10000 U, QW (ON WEDNESDAYS) (START DATE SINCE OCT-2022 OR NOV2022)
     Route: 042
     Dates: start: 202211, end: 202312
  3. ALPROLIX [Suspect]
     Active Substance: EFTRENONACOG ALFA
     Dosage: 8000 U, QW
     Route: 042
     Dates: start: 20231209
  4. ALPROLIX [Suspect]
     Active Substance: EFTRENONACOG ALFA
     Dosage: 8000 U, QW
     Route: 042
     Dates: start: 20231209
  5. HYDRALAZINE [Suspect]
     Active Substance: HYDRALAZINE HYDROCHLORIDE
     Dosage: 25 MG, TID
     Dates: start: 202311
  6. ATORVASTATIN [Concomitant]
     Active Substance: ATORVASTATIN
     Dosage: 40 MG, HS
  7. ATORVASTATIN [Concomitant]
     Active Substance: ATORVASTATIN
     Dosage: 80 MG, HS (INCREASED  TO 80 MG EVERY NIGHT AFTER PATIENT HAD STROKE.)
     Dates: start: 202312
  8. ASPIRIN [Concomitant]
     Active Substance: ASPIRIN
     Dosage: UNK UNK, TIW (EVERY MONDAY, WEDNESDAY, AND FRIDAY) (3 TIMES A WEEK)
  9. LISINOPRIL [Concomitant]
     Active Substance: LISINOPRIL
     Dosage: 20 MG, QD (ADDED AFTER PATIENT HAD A STROKEADDED AFTER PATIENT HAD A STROKE)
     Dates: start: 202312

REACTIONS (5)
  - Ischaemic stroke [Not Recovered/Not Resolved]
  - Asthenia [Not Recovered/Not Resolved]
  - Eye disorder [Not Recovered/Not Resolved]
  - Diplopia [Not Recovered/Not Resolved]
  - Thrombosis [Unknown]

NARRATIVE: CASE EVENT DATE: 20231209
